FAERS Safety Report 11717846 (Version 1)
Quarter: 2015Q4

REPORT INFORMATION
  Report Type: Spontaneous
  Country: TW (occurrence: TW)
  Receive Date: 20151110
  Receipt Date: 20151110
  Transmission Date: 20160304
  Serious: Yes (Hospitalization)
  Sender: FDA-Public Use
  Company Number: TW-AMGEN-TWNSP2015117791

PATIENT
  Age: 44 Year
  Sex: Male

DRUGS (3)
  1. ARCOXIA [Concomitant]
     Active Substance: ETORICOXIB
     Indication: ANKYLOSING SPONDYLITIS
     Dosage: 1 DF, 1X/DAY
     Route: 048
  2. SULFASALAZINE. [Concomitant]
     Active Substance: SULFASALAZINE
     Indication: ANKYLOSING SPONDYLITIS
     Dosage: 2 DF, 2X/DAY
     Route: 048
  3. ENBREL [Suspect]
     Active Substance: ETANERCEPT
     Indication: ANKYLOSING SPONDYLITIS
     Dosage: 25 MG, WEEKLY
     Route: 058
     Dates: start: 20110917

REACTIONS (2)
  - Anal haemorrhage [Recovered/Resolved]
  - Colitis ulcerative [Recovered/Resolved with Sequelae]

NARRATIVE: CASE EVENT DATE: 2015
